FAERS Safety Report 20482825 (Version 2)
Quarter: 2022Q1

REPORT INFORMATION
  Report Type: Spontaneous
  Country: CN (occurrence: CN)
  Receive Date: 20220217
  Receipt Date: 20220222
  Transmission Date: 20220423
  Serious: No
  Sender: FDA-Public Use
  Company Number: CN-BoehringerIngelheim-2022-BI-154148

PATIENT
  Age: 58 Year
  Sex: Male

DRUGS (2)
  1. PRAMIPEXOLE [Suspect]
     Active Substance: PRAMIPEXOLE
     Indication: Parkinsonism
     Route: 048
     Dates: start: 2021
  2. ROPINIROLE [Concomitant]
     Active Substance: ROPINIROLE
     Indication: Parkinsonism
     Dosage: UNIT DOSE:1 TABLET/TIME
     Route: 048
     Dates: start: 20220218

REACTIONS (4)
  - Off label use [Unknown]
  - Drug ineffective [Unknown]
  - Gait inability [Recovered/Resolved]
  - Asthenia [Recovered/Resolved]

NARRATIVE: CASE EVENT DATE: 20210101
